FAERS Safety Report 6295839-4 (Version None)
Quarter: 2009Q3

REPORT INFORMATION
  Report Type: 
  Country: None (occurrence: None)
  Receive Date: 20090804
  Receipt Date: 20090728
  Transmission Date: 20100115
  Serious: Yes (Death, Hospitalization)
  Sender: FDA-Public Use
  Company Number: MX-ROCHE-644351

PATIENT
  Age: 11 Year
  Sex: Male

DRUGS (1)
  1. VALCYTE [Suspect]
     Route: 065

REACTIONS (2)
  - DEATH [None]
  - PNEUMONITIS [None]
